FAERS Safety Report 20813569 (Version 1)
Quarter: 2022Q2

REPORT INFORMATION
  Report Type: Spontaneous
  Country: US (occurrence: US)
  Receive Date: 20220511
  Receipt Date: 20220511
  Transmission Date: 20220721
  Serious: No
  Sender: FDA-Public Use
  Company Number: US-ELI_LILLY_AND_COMPANY-US202204006908

PATIENT
  Age: 55 Year
  Sex: Female

DRUGS (1)
  1. EMGALITY [Suspect]
     Active Substance: GALCANEZUMAB-GNLM
     Indication: Migraine
     Dosage: 240 MG, SINGLE (LAODING DOSE)
     Route: 058
     Dates: start: 20210408

REACTIONS (5)
  - Ear discomfort [Recovering/Resolving]
  - Sinus disorder [Recovering/Resolving]
  - Nasal congestion [Recovering/Resolving]
  - Paranasal sinus hypersecretion [Unknown]
  - Injection site pain [Recovered/Resolved]

NARRATIVE: CASE EVENT DATE: 20210408
